FAERS Safety Report 8370368-2 (Version None)
Quarter: 2012Q2

REPORT INFORMATION
  Report Type: 
  Country: None (occurrence: None)
  Receive Date: 20120518
  Receipt Date: 20120507
  Transmission Date: 20120825
  Serious: Yes (Hospitalization, Other)
  Sender: FDA-Public Use
  Company Number: NO-JNJFOC-20120506814

PATIENT
  Sex: Female
  Weight: 16 kg

DRUGS (5)
  1. METHOTREXATE SODIUM [Concomitant]
     Indication: JUVENILE ARTHRITIS
     Route: 058
     Dates: start: 20090801, end: 20120101
  2. IBUPROFEN [Concomitant]
     Route: 048
  3. REMICADE [Suspect]
     Indication: JUVENILE ARTHRITIS
     Route: 042
     Dates: start: 20100301, end: 20110901
  4. REMICADE [Suspect]
     Route: 042
     Dates: end: 20120109
  5. ACETAMINOPHEN [Concomitant]
     Route: 065

REACTIONS (3)
  - PNEUMONIA [None]
  - RESPIRATORY TRACT INFECTION [None]
  - ATYPICAL MYCOBACTERIAL LYMPHADENITIS [None]
